FAERS Safety Report 8269305-0 (Version None)
Quarter: 2012Q2

REPORT INFORMATION
  Report Type: 
  Country: None (occurrence: None)
  Receive Date: 20120409
  Receipt Date: 20120328
  Transmission Date: 20120825
  Serious: Yes (Hospitalization, Other)
  Sender: FDA-Public Use
  Company Number: AT-ROCHE-1048277

PATIENT
  Sex: Male

DRUGS (18)
  1. OLEOVIT D3 [Concomitant]
     Route: 048
  2. ASPIRIN [Concomitant]
     Route: 048
  3. METHYLPREDNISOLONE [Concomitant]
     Route: 048
  4. BERODUAL [Concomitant]
  5. LORAZEPAM [Concomitant]
  6. CRESTOR [Concomitant]
     Route: 048
  7. SPIRIVA [Concomitant]
     Route: 048
  8. MEXAFORM [Concomitant]
     Route: 048
  9. AMLODIPINE [Concomitant]
     Route: 048
  10. DIPIDOLOR [Concomitant]
  11. ACTEMRA [Suspect]
     Indication: RHEUMATOID ARTHRITIS
     Route: 042
  12. TRAZODONE HCL [Concomitant]
     Route: 048
  13. LOVENOX [Concomitant]
     Route: 058
  14. PANTOPRAZOLE SODIUM [Concomitant]
     Route: 048
  15. DOXYCYCLINE HYCLATE [Concomitant]
     Route: 048
  16. CITALOPRAM HYDROBROMIDE [Concomitant]
     Route: 048
  17. DURAGESIC-100 [Concomitant]
     Route: 062
  18. LAEVOLAC [Concomitant]
     Route: 048

REACTIONS (2)
  - DEVICE RELATED INFECTION [None]
  - FACTOR XIII DEFICIENCY [None]
